FAERS Safety Report 7655209-0 (Version None)
Quarter: 2011Q3

REPORT INFORMATION
  Report Type: 
  Country: None (occurrence: None)
  Receive Date: 20110804
  Receipt Date: 20110729
  Transmission Date: 20111222
  Serious: No
  Sender: FDA-Public Use
  Company Number: US-BAYER-2011-067084

PATIENT
  Sex: Female

DRUGS (1)
  1. MAGNEVIST [Suspect]
     Indication: NUCLEAR MAGNETIC RESONANCE IMAGING
     Dosage: 10 ML, UNK
     Dates: start: 20110701, end: 20110701

REACTIONS (4)
  - OCULAR HYPERAEMIA [None]
  - OROPHARYNGEAL DISCOMFORT [None]
  - PHARYNGEAL OEDEMA [None]
  - THROAT IRRITATION [None]
